FAERS Safety Report 8863043 (Version 1)
Quarter: 2012Q4

REPORT INFORMATION
  Report Type: 
  Country: FR (occurrence: FR)
  Receive Date: 20121026
  Receipt Date: 20121026
  Transmission Date: 20130627
  Serious: Yes (Hospitalization, Other)
  Sender: FDA-Public Use
  Company Number: FR-JNJFOC-20121011655

PATIENT
  Age: 20 Year
  Sex: Female

DRUGS (5)
  1. IXPRIM [Suspect]
     Indication: PRODUCT USED FOR UNKNOWN INDICATION
     Route: 048
     Dates: start: 20120822, end: 20120822
  2. DOLIPRANE [Suspect]
     Indication: PRODUCT USED FOR UNKNOWN INDICATION
     Route: 048
     Dates: start: 20120822, end: 20120822
  3. PRAZEPAM [Suspect]
     Indication: PRODUCT USED FOR UNKNOWN INDICATION
     Route: 048
     Dates: start: 20120822, end: 20120822
  4. SERESTA [Suspect]
     Indication: PRODUCT USED FOR UNKNOWN INDICATION
     Route: 048
     Dates: start: 20120822, end: 20120822
  5. DAFALGAN [Suspect]
     Indication: PRODUCT USED FOR UNKNOWN INDICATION
     Route: 048
     Dates: start: 20120822, end: 20120822

REACTIONS (3)
  - Suicide attempt [Recovered/Resolved]
  - Prothrombin time shortened [Recovered/Resolved]
  - Overdose [Recovered/Resolved]
